FAERS Safety Report 18174854 (Version 1)
Quarter: 2020Q3

REPORT INFORMATION
  Report Type: Spontaneous
  Country: US (occurrence: US)
  Receive Date: 20200820
  Receipt Date: 20200820
  Transmission Date: 20201103
  Serious: No
  Sender: FDA-Public Use
  Company Number: None

PATIENT
  Age: 80 Year
  Sex: Female
  Weight: 68.04 kg

DRUGS (17)
  1. DILTIAZEM. [Concomitant]
     Active Substance: DILTIAZEM
  2. ERLOTINIB [Suspect]
     Active Substance: ERLOTINIB
     Indication: RENAL CANCER
     Route: 048
     Dates: start: 20200616
  3. MYRBETRIQ [Concomitant]
     Active Substance: MIRABEGRON
  4. JANUVIA [Concomitant]
     Active Substance: SITAGLIPTIN PHOSPHATE
  5. ALPHA LIPOIC ACID [Concomitant]
     Active Substance: .ALPHA.-LIPOIC ACID
  6. METOPROLOL. [Concomitant]
     Active Substance: METOPROLOL
  7. EVAMIST [Concomitant]
     Active Substance: ESTRADIOL
  8. CABOMETYX [Concomitant]
     Active Substance: CABOZANTINIB S-MALATE
  9. GABAPENTIN. [Concomitant]
     Active Substance: GABAPENTIN
  10. TEMAZEPAM. [Concomitant]
     Active Substance: TEMAZEPAM
  11. LEVOTHYROXINE. [Concomitant]
     Active Substance: LEVOTHYROXINE
  12. VENTOLIN [Concomitant]
     Active Substance: ALBUTEROL SULFATE
  13. ZETIA [Concomitant]
     Active Substance: EZETIMIBE
  14. METANIX [Concomitant]
  15. PREDNISOLONE. [Concomitant]
     Active Substance: PREDNISOLONE
  16. PROBIOTICS [Concomitant]
     Active Substance: PROBIOTICS NOS
  17. ELIQUIS [Concomitant]
     Active Substance: APIXABAN

REACTIONS (1)
  - Dyspepsia [None]

NARRATIVE: CASE EVENT DATE: 20200820
